FAERS Safety Report 11935538 (Version 1)
Quarter: 2016Q1

REPORT INFORMATION
  Report Type: Spontaneous
  Country: US (occurrence: US)
  Receive Date: 20160121
  Receipt Date: 20160121
  Transmission Date: 20160526
  Serious: No
  Sender: FDA-Public Use
  Company Number: US-GLAXOSMITHKLINE-US2016007125

PATIENT
  Age: 45 Year
  Sex: Female

DRUGS (1)
  1. ALLI [Suspect]
     Active Substance: ORLISTAT
     Indication: WEIGHT LOSS DIET
     Dosage: UNK
     Dates: start: 20160116, end: 20160119

REACTIONS (4)
  - Wrong technique in product usage process [Unknown]
  - Anxiety [Recovered/Resolved]
  - Epigastric discomfort [Not Recovered/Not Resolved]
  - Malaise [Recovered/Resolved]

NARRATIVE: CASE EVENT DATE: 20160116
